FAERS Safety Report 4806389-3 (Version None)
Quarter: 2005Q4

REPORT INFORMATION
  Report Type: 
  Country: None (occurrence: None)
  Receive Date: 20051021
  Receipt Date: 20051012
  Transmission Date: 20060501
  Serious: Yes (Other)
  Sender: FDA-Public Use
  Company Number: PHEH2005US11415

PATIENT
  Age: 78 Year
  Sex: Male
  Weight: 57 kg

DRUGS (10)
  1. ARANESP [Concomitant]
  2. ADRIAMYCIN PFS [Concomitant]
     Indication: PROSTATE CANCER
     Dosage: 20 MG/M2 WEEKLY
     Dates: start: 20050728, end: 20050825
  3. TAXOTERE [Concomitant]
     Indication: PROSTATE CANCER
     Dosage: 75 MG/M2 EVERY 21 DAYS
     Dates: start: 20050106, end: 20050602
  4. ZOLADEX [Concomitant]
     Indication: PROSTATE CANCER
     Dosage: 10.8 MG EVERY 3 MONTH
     Route: 058
     Dates: start: 20030306, end: 20050728
  5. ZOMETA [Suspect]
     Indication: METASTASES TO BONE
     Dosage: 4 MG MONTHLY
     Dates: start: 20031218, end: 20050818
  6. PERIDEX [Concomitant]
     Dates: start: 20051006
  7. LUPRON [Concomitant]
     Indication: PROSTATE CANCER
     Dosage: 30 MG EVERY 4 MONTH
     Route: 030
     Dates: start: 20010125, end: 20021031
  8. ZEMPLAR [Concomitant]
     Indication: PROSTATE CANCER
     Dosage: 12 MEQ THREE TIMES PER WEEK
     Dates: start: 20010706, end: 20010928
  9. PREDNISONE [Concomitant]
     Indication: PROSTATE CANCER
     Dosage: 5 MG, BID
     Route: 048
     Dates: start: 20050106, end: 20050801
  10. DEXAMETHASONE [Concomitant]
     Indication: PROSTATE CANCER
     Dosage: 8 MG, BID POST CHEMOTHERAPY
     Dates: start: 20050106, end: 20050602

REACTIONS (8)
  - BLOODY DISCHARGE [None]
  - COMPRESSION FRACTURE [None]
  - HAEMORRHAGE [None]
  - HYPOAESTHESIA [None]
  - INFLAMMATION [None]
  - OSTEONECROSIS [None]
  - PAIN [None]
  - SWELLING [None]
